FAERS Safety Report 5270133-9 (Version None)
Quarter: 2007Q1

REPORT INFORMATION
  Report Type: 
  Country: None (occurrence: None)
  Receive Date: 20070320
  Receipt Date: 20070316
  Transmission Date: 20070707
  Serious: Yes (Life-Threatening, Hospitalization, Other)
  Sender: FDA-Public Use
  Company Number: 2007PK00654

PATIENT

DRUGS (7)
  1. IRESSA [Suspect]
     Indication: GLIOBLASTOMA MULTIFORME
  2. KEPPRA [Concomitant]
     Indication: EPILEPSY
     Dates: start: 20050924
  3. METOPROLOL SUCCINATE [Concomitant]
     Indication: ATRIAL FIBRILLATION
     Dates: start: 20060101
  4. FORTECOETIN [Concomitant]
     Indication: OEDEMA
     Dates: start: 20060101
  5. SURMONTIL 4 % [Concomitant]
     Indication: DEPRESSION
     Dates: start: 20060101
  6. MISTEL [Concomitant]
     Indication: GLIOBLASTOMA MULTIFORME
  7. SPIRICORT [Concomitant]
     Indication: OEDEMA
     Dates: start: 20070111

REACTIONS (1)
  - LOBAR PNEUMONIA [None]
